FAERS Safety Report 24082994 (Version 1)
Quarter: 2024Q3

REPORT INFORMATION
  Report Type: Spontaneous
  Country: MX (occurrence: MX)
  Receive Date: 20240712
  Receipt Date: 20240712
  Transmission Date: 20241017
  Serious: Yes (Other)
  Sender: NOVAST
  Company Number: MX-NOVAST LABORATORIES INC.-2024NOV000268

PATIENT
  Age: 49 Year
  Sex: Female

DRUGS (3)
  1. FLUOROURACIL [Suspect]
     Active Substance: FLUOROURACIL
     Indication: Product used for unknown indication
     Dosage: UNK
     Route: 057
  2. FLUOROURACIL [Suspect]
     Active Substance: FLUOROURACIL
     Dosage: 5 MILLIGRAM, (0.2 ML 2.5%)
     Route: 057
  3. TETRACAINE HYDROCHLORIDE [Concomitant]
     Active Substance: TETRACAINE HYDROCHLORIDE
     Indication: Product used for unknown indication
     Dosage: 0.5 %
     Route: 065

REACTIONS (2)
  - Cataract [Recovering/Resolving]
  - Iris atrophy [Not Recovered/Not Resolved]
